FAERS Safety Report 19932170 (Version 1)
Quarter: 2021Q4

REPORT INFORMATION
  Report Type: Spontaneous
  Country: US (occurrence: US)
  Receive Date: 20211007
  Receipt Date: 20211007
  Transmission Date: 20220303
  Serious: Yes (Other)
  Sender: FDA-Public Use
  Company Number: US-SUN PHARMACEUTICAL INDUSTRIES LTD-2021R1-313531

PATIENT
  Age: 61 Year
  Sex: Female

DRUGS (4)
  1. CARBOPLATIN [Suspect]
     Active Substance: CARBOPLATIN
     Indication: Intraductal proliferative breast lesion
     Dosage: UNK (6 CYCLES)
     Route: 065
  2. DOCETAXEL [Suspect]
     Active Substance: DOCETAXEL
     Indication: Intraductal proliferative breast lesion
     Dosage: UNK (6 CYCLES)
     Route: 065
  3. TRASTUZUMAB [Suspect]
     Active Substance: TRASTUZUMAB
     Indication: Intraductal proliferative breast lesion
     Dosage: UNK (6 CYCLES)
     Route: 065
  4. PERTUZUMAB [Suspect]
     Active Substance: PERTUZUMAB
     Indication: Intraductal proliferative breast lesion
     Dosage: UNK (1 CYCLES)
     Route: 065

REACTIONS (1)
  - Gastrointestinal toxicity [Unknown]
